FAERS Safety Report 12980228 (Version 1)
Quarter: 2016Q4

REPORT INFORMATION
  Report Type: Spontaneous
  Country: US (occurrence: US)
  Receive Date: 20161128
  Receipt Date: 20161128
  Transmission Date: 20170207
  Serious: Yes (Hospitalization)
  Sender: FDA-Public Use
  Company Number: US-TEVA-714474USA

PATIENT
  Age: 66 Year
  Sex: Female
  Weight: 59.02 kg

DRUGS (16)
  1. LETAIRIS [Suspect]
     Active Substance: AMBRISENTAN
     Dosage: 5 MILLIGRAM DAILY;
     Route: 065
     Dates: start: 20130425
  2. TYVASO [Suspect]
     Active Substance: TREPROSTINIL
     Route: 065
  3. TYVASO [Suspect]
     Active Substance: TREPROSTINIL
     Dosage: 96 MICROGRAM DAILY;
     Route: 065
  4. ADCIRCA [Concomitant]
     Active Substance: TADALAFIL
  5. LETAIRIS [Suspect]
     Active Substance: AMBRISENTAN
     Dosage: 10 MILLIGRAM DAILY;
     Route: 065
     Dates: start: 20130425
  6. SPIRONOLACTONE. [Suspect]
     Active Substance: SPIRONOLACTONE
     Route: 065
  7. TYVASO [Suspect]
     Active Substance: TREPROSTINIL
     Dosage: 144 MICROGRAM DAILY;
     Route: 065
  8. TYVASO [Suspect]
     Active Substance: TREPROSTINIL
     Dosage: 196 MICROGRAM DAILY;
     Route: 065
  9. MIDODRINE [Suspect]
     Active Substance: MIDODRINE
     Route: 065
     Dates: start: 20160630
  10. TYVASO [Suspect]
     Active Substance: TREPROSTINIL
     Dosage: 168 MICROGRAM DAILY;
     Route: 065
  11. TYVASO [Suspect]
     Active Substance: TREPROSTINIL
     Dosage: 192 MICROGRAM DAILY;
     Route: 065
     Dates: start: 20160816
  12. TYVASO [Suspect]
     Active Substance: TREPROSTINIL
     Dosage: 216 MICROGRAM DAILY;
     Route: 065
  13. LETAIRIS [Suspect]
     Active Substance: AMBRISENTAN
     Route: 065
  14. TYVASO [Suspect]
     Active Substance: TREPROSTINIL
     Indication: PULMONARY HYPERTENSION
     Dosage: 18-54 MICROGRAM
     Route: 065
     Dates: start: 20160629
  15. LETAIRIS [Suspect]
     Active Substance: AMBRISENTAN
     Indication: PULMONARY HYPERTENSION
     Dosage: 10 MILLIGRAM DAILY;
     Route: 065
     Dates: start: 20120502
  16. WARFARIN [Concomitant]
     Active Substance: WARFARIN

REACTIONS (26)
  - Fluid overload [Unknown]
  - Pain in extremity [Unknown]
  - Oedema peripheral [Unknown]
  - Fluid retention [Unknown]
  - Back pain [Not Recovered/Not Resolved]
  - Localised oedema [Unknown]
  - Rash [Unknown]
  - Oxygen saturation increased [Unknown]
  - Chest pain [Unknown]
  - Candida infection [Unknown]
  - Abdominal distension [Unknown]
  - Cough [Unknown]
  - Renal function test abnormal [Unknown]
  - Nasal congestion [Unknown]
  - Fatigue [Unknown]
  - Headache [Unknown]
  - Pulmonary pain [Not Recovered/Not Resolved]
  - Retching [Unknown]
  - Flushing [Unknown]
  - Seasonal allergy [Unknown]
  - Restless legs syndrome [Unknown]
  - Pain [Unknown]
  - Pharyngeal oedema [Unknown]
  - Dyspnoea [Unknown]
  - Oxygen saturation decreased [Unknown]
  - Muscle tightness [Unknown]

NARRATIVE: CASE EVENT DATE: 2016
